FAERS Safety Report 7792216-1 (Version None)
Quarter: 2011Q4

REPORT INFORMATION
  Report Type: 
  Country: None (occurrence: None)
  Receive Date: 20111003
  Receipt Date: 20111003
  Transmission Date: 20120403
  Serious: Yes (Other)
  Sender: FDA-Public Use
  Company Number: None

PATIENT
  Age: 60 Year
  Sex: Female
  Weight: 83.914 kg

DRUGS (4)
  1. BYETTA [Suspect]
     Indication: DIABETES MELLITUS
     Dosage: 10MCG
     Route: 058
  2. LANTUS [Concomitant]
     Route: 058
  3. METFORMIN HCL [Concomitant]
     Route: 048
  4. GLIPIZIDE [Concomitant]
     Route: 048

REACTIONS (2)
  - DIARRHOEA [None]
  - LIPASE INCREASED [None]
